FAERS Safety Report 7641710-2 (Version None)
Quarter: 2011Q3

REPORT INFORMATION
  Report Type: 
  Country: None (occurrence: None)
  Receive Date: 20110728
  Receipt Date: 20110718
  Transmission Date: 20111222
  Serious: Yes (Death)
  Sender: FDA-Public Use
  Company Number: US-EISAI INC-E7272-00101-SPO-US

PATIENT
  Age: 47 Year
  Sex: Female
  Weight: 68 kg

DRUGS (6)
  1. VINCRISTINE [Concomitant]
     Indication: PERIPHERAL T-CELL LYMPHOMA UNSPECIFIED RECURRENT
     Dosage: UNKNOWN
     Route: 042
     Dates: start: 20101210, end: 20101210
  2. PREDNISONE [Concomitant]
     Indication: PERIPHERAL T-CELL LYMPHOMA UNSPECIFIED RECURRENT
     Dosage: UNKNOWN
     Route: 048
     Dates: start: 20101210, end: 20101210
  3. CYCLOPHOSPHAMIDE [Concomitant]
     Indication: PERIPHERAL T-CELL LYMPHOMA UNSPECIFIED RECURRENT
     Dosage: UNKNOWN
     Route: 042
     Dates: start: 20101210, end: 20101210
  4. ONTAK [Suspect]
     Indication: PERIPHERAL T-CELL LYMPHOMA UNSPECIFIED RECURRENT
     Route: 041
     Dates: start: 20101208, end: 20101209
  5. NEULASTA [Concomitant]
     Dosage: UNKNOWN
     Route: 058
     Dates: start: 20101210, end: 20101210
  6. DOXORUBICIN HCL [Concomitant]
     Indication: PERIPHERAL T-CELL LYMPHOMA UNSPECIFIED RECURRENT
     Dosage: UNKNOWN
     Route: 042
     Dates: start: 20101210, end: 20101210

REACTIONS (1)
  - RHABDOMYOLYSIS [None]
